FAERS Safety Report 9796629 (Version 3)
Quarter: 2014Q1

REPORT INFORMATION
  Report Type: Spontaneous
  Country: IT (occurrence: IT)
  Receive Date: 20140103
  Receipt Date: 20140307
  Transmission Date: 20141002
  Serious: Yes (Hospitalization)
  Sender: FDA-Public Use
  Company Number: IT-PFIZER INC-2014001530

PATIENT
  Age: 84 Year
  Sex: Male

DRUGS (8)
  1. EFEXOR ER [Suspect]
     Dosage: UNK
     Dates: start: 20121023, end: 20131022
  2. LORAZEPAM [Suspect]
     Dosage: UNK
     Dates: start: 20121023, end: 20131022
  3. FELISON [Suspect]
     Dosage: UNK
     Dates: start: 20121023, end: 20131022
  4. HALDOL [Suspect]
     Dosage: UNK
     Dates: start: 20121023, end: 20131022
  5. CARDIOASPIRIN [Concomitant]
     Dosage: UNK
  6. PROVISACOR [Concomitant]
     Dosage: UNK
  7. HUMALOG [Concomitant]
     Dosage: UNK
  8. ENAPREN [Concomitant]
     Dosage: UNK

REACTIONS (4)
  - Aggression [Recovering/Resolving]
  - Agitation [Recovering/Resolving]
  - Hallucination, auditory [Recovering/Resolving]
  - Hallucination, visual [Recovering/Resolving]
